FAERS Safety Report 24202494 (Version 1)
Quarter: 2024Q3

REPORT INFORMATION
  Report Type: Spontaneous
  Country: SI (occurrence: SI)
  Receive Date: 20240813
  Receipt Date: 20240813
  Transmission Date: 20241017
  Serious: Yes (Other)
  Sender: NOVARTIS
  Company Number: SI-002147023-NVSC2024SI162440

PATIENT
  Sex: Male

DRUGS (1)
  1. BEOVU [Suspect]
     Active Substance: BROLUCIZUMAB-DBLL
     Indication: Diabetic retinal oedema
     Dosage: UNK
     Route: 065

REACTIONS (3)
  - Macular oedema [Unknown]
  - Macular degeneration [Unknown]
  - Blindness [Unknown]
